FAERS Safety Report 4882908-6 (Version None)
Quarter: 2005Q4

REPORT INFORMATION
  Report Type: 
  Country: None (occurrence: None)
  Receive Date: 20051201
  Receipt Date: 20050901
  Transmission Date: 20060501
  Serious: No
  Sender: FDA-Public Use
  Company Number: 2005PV001745

PATIENT
  Age: 62 Year
  Sex: Male

DRUGS (5)
  1. BYETTA [Suspect]
     Indication: DIABETES MELLITUS NON-INSULIN-DEPENDENT
     Dosage: 5 MCG;BID;SC
     Route: 058
     Dates: start: 20050823, end: 20050826
  2. GLUCOPHAGE [Concomitant]
  3. ALTACE [Concomitant]
  4. ASPIRIN [Concomitant]
  5. PROSCAR [Concomitant]

REACTIONS (6)
  - ERYTHEMA [None]
  - INSOMNIA [None]
  - NASAL CONGESTION [None]
  - NAUSEA [None]
  - PYREXIA [None]
  - RHINORRHOEA [None]
